FAERS Safety Report 6374154-4 (Version None)
Quarter: 2009Q3

REPORT INFORMATION
  Report Type: 
  Country: None (occurrence: None)
  Receive Date: 20090924
  Receipt Date: 20090624
  Transmission Date: 20100115
  Serious: No
  Sender: FDA-Public Use
  Company Number: US-ASTRAZENECA-2009UW17485

PATIENT
  Age: 65 Year
  Sex: Female

DRUGS (3)
  1. SEROQUEL XR [Suspect]
     Indication: AFFECTIVE DISORDER
     Dosage: 50 MG
     Route: 048
  2. SEROQUEL XR [Suspect]
     Indication: DEMENTIA
     Dosage: 50 MG
     Route: 048
  3. ANTIDEPRESSANTS [Concomitant]

REACTIONS (1)
  - CONFUSIONAL STATE [None]
